FAERS Safety Report 6782216-2 (Version None)
Quarter: 2010Q2

REPORT INFORMATION
  Report Type: 
  Country: None (occurrence: None)
  Receive Date: 20100621
  Receipt Date: 20100609
  Transmission Date: 20101027
  Serious: Yes (Hospitalization)
  Sender: FDA-Public Use
  Company Number: FR-JNJFOC-20100605525

PATIENT
  Sex: Female

DRUGS (3)
  1. ZALDIAR [Suspect]
     Indication: DRUG USE FOR UNKNOWN INDICATION
     Dosage: 2 DF IN THE MORNING AND 2 DF IN THE EVENING.
     Route: 048
  2. NOVANTRONE [Suspect]
     Indication: DRUG USE FOR UNKNOWN INDICATION
     Dosage: THE LAST TREATMENT CYCLE WAS TAKEN ON 14-APR-2010.
     Route: 041
  3. 3,4-DIAMINOPYRIDINE [Suspect]
     Indication: DRUG USE FOR UNKNOWN INDICATION
     Dosage: TAKEN EPISODICALLY; LAST INTAKE WAS A FEW WEEKS PRIOR TO THE ONSET OF THE REPORTED EVENT
     Route: 065

REACTIONS (1)
  - PHOTOSENSITIVITY REACTION [None]
